FAERS Safety Report 23041729 (Version 1)
Quarter: 2023Q4

REPORT INFORMATION
  Report Type: Spontaneous
  Country: PL (occurrence: PL)
  Receive Date: 20231007
  Receipt Date: 20231007
  Transmission Date: 20240109
  Serious: Yes (Other)
  Sender: FDA-Public Use
  Company Number: None

PATIENT
  Age: 50 Year
  Sex: Female
  Weight: 84 kg

DRUGS (2)
  1. CARBOPLATIN [Suspect]
     Active Substance: CARBOPLATIN
     Indication: Ovarian cancer
     Dosage: DOSE: 852; DOSE UNIT: NOT SPECIFIED, EXP. 30/06/2021 (450 MG); EXP. 31/12/2020  (150 MG)
     Dates: start: 20200724, end: 20200724
  2. PACLITAXEL [Suspect]
     Active Substance: PACLITAXEL
     Indication: Ovarian cancer
     Dosage: DOSE: 343; DOSE UNIT: NOT SPECIFIED
     Dates: start: 20200724, end: 20200724

REACTIONS (2)
  - Hepatic failure [Recovering/Resolving]
  - Phlebitis [Recovering/Resolving]

NARRATIVE: CASE EVENT DATE: 20200728
